FAERS Safety Report 5292533-3 (Version None)
Quarter: 2007Q2

REPORT INFORMATION
  Report Type: 
  Country: None (occurrence: None)
  Receive Date: 20070403
  Receipt Date: 20070326
  Transmission Date: 20071010
  Serious: Yes (Other)
  Sender: FDA-Public Use
  Company Number: 238901

PATIENT
  Age: 7 Year
  Sex: Male
  Weight: 16.8 kg

DRUGS (5)
  1. NUTROPIN [Suspect]
     Indication: GROWTH HORMONE DEFICIENCY
     Dosage: 1 MG, 6/WEEK, SUBCUTANEOUS
     Route: 058
     Dates: start: 20070216
  2. SINGULAIR [Suspect]
     Indication: ASTHMA
     Dosage: 5 MG, QD, ORAL
     Route: 048
  3. ALBUTEROL INHALER (ALBUTEROL/ALBUTEROL SULFATE) [Concomitant]
  4. FLOVENT [Concomitant]
  5. MIRALAX [Concomitant]

REACTIONS (4)
  - GAIT DISTURBANCE [None]
  - LIMB INJURY [None]
  - PAIN IN EXTREMITY [None]
  - SINUSITIS [None]
